FAERS Safety Report 6467031-1 (Version None)
Quarter: 2009Q4

REPORT INFORMATION
  Report Type: 
  Country: None (occurrence: None)
  Receive Date: 20091127
  Receipt Date: 20091114
  Transmission Date: 20100525
  Serious: Yes (Hospitalization, Other)
  Sender: FDA-Public Use
  Company Number: 2009AP004605

PATIENT
  Age: 16 Year
  Sex: Male

DRUGS (15)
  1. FLUOXETINE HYDROCHLORIDE [Suspect]
     Indication: ANXIETY
     Dosage: 30 MG; PO, 50 MG;QD; 40 MG;QD
     Route: 048
  2. RISPERIDONE [Suspect]
     Indication: TOURETTE'S DISORDER
     Dosage: 5 MG;QD; PO, 2 MG; QD
     Route: 048
  3. HALOPERIDOL [Suspect]
  4. OXCARBAZEPINE [Suspect]
  5. LEVETIRACETAM [Suspect]
  6. TOPIRAMATE [Suspect]
     Indication: DECREASED APPETITE
     Dosage: 75 MG; QD;
  7. MIDAZOLAM HYDROCHLORIDE [Suspect]
  8. ZOLPIDEM TARTRATE [Suspect]
  9. FLUPHENAZINE HCL [Suspect]
     Dosage: 3 MG;QD; PO
     Route: 048
  10. TETRABENAZINE [Suspect]
     Dosage: 37.5 MG; BID, 12.5 MG;QD, 37.5 MG;QD.
  11. PIMOZIDE [Suspect]
     Dosage: 3 MG; QD
  12. BENZTROPINE MESYLATE [Suspect]
     Indication: TOURETTE'S DISORDER
  13. ARIPIPRAZOLE [Suspect]
  14. ZIPRASIDONE HCL [Concomitant]
  15. ALPRAZOLAM [Concomitant]

REACTIONS (14)
  - AFFECTIVE DISORDER [None]
  - ANXIETY [None]
  - BLOOD PROLACTIN INCREASED [None]
  - CONDITION AGGRAVATED [None]
  - DEPRESSION [None]
  - DRUG EFFECT DECREASED [None]
  - DRUG INTERACTION [None]
  - ELECTROCARDIOGRAM QT PROLONGED [None]
  - GALACTORRHOEA [None]
  - LETHARGY [None]
  - MUSCULOSKELETAL STIFFNESS [None]
  - SUICIDAL IDEATION [None]
  - TIC [None]
  - WEIGHT INCREASED [None]
